FAERS Safety Report 14189078 (Version 6)
Quarter: 2017Q4

REPORT INFORMATION
  Report Type: Spontaneous
  Country: GB (occurrence: GB)
  Receive Date: 20171115
  Receipt Date: 20171120
  Transmission Date: 20180321
  Serious: Yes (Other)
  Sender: FDA-Public Use
  Company Number: GB-CONCORDIA PHARMACEUTICALS INC.-GSH201605-002478

PATIENT
  Age: 32 Year
  Sex: Female
  Weight: 56 kg

DRUGS (13)
  1. PREDNISOLONE. [Suspect]
     Active Substance: PREDNISOLONE
     Indication: CROHN^S DISEASE
     Dosage: 80MG FOR FIRST FORTNIGHT, THEN DECREASING BY 5MG PER WEEK
     Route: 048
     Dates: start: 20160321
  2. ADCAL-D3 [Concomitant]
     Active Substance: CALCIUM CARBONATE\CHOLECALCIFEROL
  3. IRON [Concomitant]
     Active Substance: IRON
  4. PROPRANOLOL [Concomitant]
     Active Substance: PROPRANOLOL HYDROCHLORIDE
  5. HYOSCINE BUTYLBROMIDE [Concomitant]
     Active Substance: BUTYLSCOPOLAMINE
  6. INFLIXIMAB [Concomitant]
     Active Substance: INFLIXIMAB
  7. CODEINE PHOSPHATE [Concomitant]
     Active Substance: CODEINE PHOSPHATE
  8. FLUTICASONE. [Concomitant]
     Active Substance: FLUTICASONE
  9. HYDROXOCOBALAMIN [Concomitant]
     Active Substance: HYDROXOCOBALAMIN
  10. PENTASA [Concomitant]
     Active Substance: MESALAMINE
  11. FEXOFENADINE [Concomitant]
     Active Substance: FEXOFENADINE\FEXOFENADINE HYDROCHLORIDE
  12. LOPERAMIDE [Concomitant]
     Active Substance: LOPERAMIDE
  13. PARACETAMOL [Concomitant]
     Active Substance: ACETAMINOPHEN

REACTIONS (7)
  - Increased appetite [Recovering/Resolving]
  - Muscle spasms [Recovering/Resolving]
  - Night sweats [Recovering/Resolving]
  - Dyspepsia [Not Recovered/Not Resolved]
  - Insomnia [Recovering/Resolving]
  - Hair growth abnormal [Recovering/Resolving]
  - Menstruation delayed [Not Recovered/Not Resolved]

NARRATIVE: CASE EVENT DATE: 20160321
